FAERS Safety Report 4522746-7 (Version None)
Quarter: 2004Q4

REPORT INFORMATION
  Report Type: 
  Country: None (occurrence: None)
  Receive Date: 20041207
  Receipt Date: 20041126
  Transmission Date: 20050328
  Serious: Yes (Hospitalization)
  Sender: FDA-Public Use
  Company Number: 2004-119788-NL

PATIENT
  Age: 65 Year
  Sex: Female

DRUGS (8)
  1. MIRTAZAPINE [Suspect]
     Indication: DEPRESSION
     Dosage: 30 MG QD ORAL
     Route: 048
     Dates: start: 20040607, end: 20040716
  2. PRAZEPAM [Concomitant]
  3. VENLAFAXINE HYDROCHORIDE [Concomitant]
  4. CLOMIPRAMINE HCL [Concomitant]
  5. CYAMEMAZINE [Concomitant]
  6. CLORAZEPATE DIPOTASSIUM [Concomitant]
  7. ZOPICLONE [Concomitant]
  8. HEPATAMINOL HYDROCHLORIDE [Concomitant]

REACTIONS (1)
  - HEPATITIS [None]
